FAERS Safety Report 4987446-8 (Version None)
Quarter: 2006Q2

REPORT INFORMATION
  Report Type: 
  Country: None (occurrence: None)
  Receive Date: 20060501
  Receipt Date: 20050930
  Transmission Date: 20061013
  Serious: Yes (Hospitalization, Other)
  Sender: FDA-Public Use
  Company Number: US-MERCK-0510USA02063

PATIENT
  Age: 46 Year
  Sex: Female
  Weight: 120 kg

DRUGS (15)
  1. VIOXX [Suspect]
     Indication: PAIN
     Route: 048
     Dates: start: 20040201, end: 20040601
  2. TRICOR [Concomitant]
     Route: 065
  3. INSULIN HUMAN, ISOPHANE [Concomitant]
     Route: 065
  4. INSULIN [Concomitant]
     Route: 065
  5. ALDACTONE [Concomitant]
     Route: 065
  6. TEMAZEPAM [Concomitant]
     Route: 065
  7. BENICAR [Concomitant]
     Route: 065
  8. RISPERDAL [Concomitant]
     Route: 065
  9. TRAMADOL HYDROCHLORIDE [Concomitant]
     Route: 065
  10. PREVACID [Concomitant]
     Route: 065
  11. SEROQUEL [Concomitant]
     Route: 065
  12. TOPAMAX [Concomitant]
     Route: 065
  13. DOCUSATE SODIUM [Concomitant]
     Route: 065
  14. ASPIRIN [Concomitant]
     Route: 065
  15. COLCHICINE [Concomitant]
     Route: 065

REACTIONS (37)
  - ANGINA PECTORIS [None]
  - ANXIETY [None]
  - ARTHRALGIA [None]
  - AZOTAEMIA [None]
  - BLOOD GLUCOSE INCREASED [None]
  - CARDIOVASCULAR DISORDER [None]
  - CHANGE OF BOWEL HABIT [None]
  - CHEST PAIN [None]
  - CHRONIC OBSTRUCTIVE PULMONARY DISEASE [None]
  - DEHYDRATION [None]
  - DIABETES MELLITUS [None]
  - DRUG HYPERSENSITIVITY [None]
  - DYSPNOEA [None]
  - FATIGUE [None]
  - GASTRITIS [None]
  - GOUT [None]
  - HEADACHE [None]
  - HEPATIC FAILURE [None]
  - HEPATITIS [None]
  - HYPERALDOSTERONISM [None]
  - HYPERTENSION [None]
  - HYPOGLYCAEMIA [None]
  - HYPOKALAEMIA [None]
  - HYPONATRAEMIA [None]
  - HYPOXIA [None]
  - INTERVERTEBRAL DISC DEGENERATION [None]
  - MICROALBUMINURIA [None]
  - NERVOUSNESS [None]
  - NOCTURIA [None]
  - OEDEMA PERIPHERAL [None]
  - OESOPHAGITIS [None]
  - POLYURIA [None]
  - RENAL FAILURE [None]
  - SWELLING [None]
  - THYROID DISORDER [None]
  - VENTRICULAR DYSFUNCTION [None]
  - WEIGHT INCREASED [None]
